FAERS Safety Report 15794548 (Version 1)
Quarter: 2019Q1

REPORT INFORMATION
  Report Type: Report from Study
  Country: US (occurrence: US)
  Receive Date: 20190107
  Receipt Date: 20190107
  Transmission Date: 20190417
  Serious: Yes (Other)
  Sender: FDA-Public Use
  Company Number: US-PFIZER INC-2019003453

PATIENT
  Age: 34 Year
  Sex: Male
  Weight: 71 kg

DRUGS (5)
  1. IDARUBICIN HCL [Suspect]
     Active Substance: IDARUBICIN HYDROCHLORIDE
     Indication: ACUTE MYELOID LEUKAEMIA
     Dosage: 12 MG/M2, 1X/DAY
     Route: 042
     Dates: start: 20180929, end: 20181001
  2. ICLUSIG [Suspect]
     Active Substance: PONATINIB
     Indication: CHRONIC MYELOID LEUKAEMIA TRANSFORMATION
     Dosage: 30 MG, 1X/DAY
     Route: 048
     Dates: start: 20181016
  3. CYTARABINE. [Concomitant]
     Active Substance: CYTARABINE
     Dosage: UNK
     Dates: start: 20181016, end: 20181019
  4. IDARUBICIN HCL [Suspect]
     Active Substance: IDARUBICIN HYDROCHLORIDE
     Dosage: 2 MG/M2, 1X/DAY (EVERY 24 HOURS)
     Route: 042
     Dates: start: 20180929, end: 20181001
  5. CYTARABINE. [Concomitant]
     Active Substance: CYTARABINE
     Dosage: UNK
     Dates: start: 20180929, end: 20181005

REACTIONS (7)
  - Platelet count decreased [Not Recovered/Not Resolved]
  - Cardiomyopathy [Unknown]
  - Red blood cell count decreased [Recovering/Resolving]
  - White blood cell count abnormal [Recovered/Resolved]
  - Blood alkaline phosphatase abnormal [Not Recovered/Not Resolved]
  - Blood albumin abnormal [Unknown]
  - Blood creatinine abnormal [Unknown]

NARRATIVE: CASE EVENT DATE: 20181016
